FAERS Safety Report 7453191-2 (Version None)
Quarter: 2011Q2

REPORT INFORMATION
  Report Type: 
  Country: None (occurrence: None)
  Receive Date: 20110502
  Receipt Date: 20110428
  Transmission Date: 20111010
  Serious: Yes (Other)
  Sender: FDA-Public Use
  Company Number: SG-BAYER-2011-036885

PATIENT
  Age: 61 Year
  Sex: Male

DRUGS (1)
  1. GLUCOBAY [Suspect]
     Indication: PRODUCT USED FOR UNKNOWN INDICATION
     Dosage: UNK

REACTIONS (1)
  - URTICARIA [None]
